FAERS Safety Report 6480830-5 (Version None)
Quarter: 2009Q4

REPORT INFORMATION
  Report Type: 
  Country: None (occurrence: None)
  Receive Date: 20091203
  Receipt Date: 20091123
  Transmission Date: 20100525
  Serious: Yes (Other)
  Sender: FDA-Public Use
  Company Number: 09US005284

PATIENT
  Age: 52 Year
  Sex: Male
  Weight: 63.5 kg

DRUGS (7)
  1. LICE SHMPO LIQ 866 (PYRETHRINS .33 %, PIPERONY BUTOXIDE 4 %) SHAMPOO [Suspect]
     Indication: LICE INFESTATION
     Dosage: ONE APPLICATION, THREE TIMES WEEKLY TO HEAD AND BODY, TOPICAL
     Route: 061
     Dates: start: 20090523, end: 20091109
  2. RID (PIPERONYL BUTOXIDE, TANACETUM CINERARIIFOLIUM EXTRACT) [Suspect]
     Indication: LICE INFESTATION
     Dosage: ONE APPLICATION, THREE TIMES WEEKLY TOPICALLY TO HEAD AND BODY, TOPICAL
     Route: 061
     Dates: start: 20081123, end: 20090523
  3. LISINOPRIL (LISINOPRIL DIHYDRATE) [Concomitant]
  4. METFORMIN HCL [Concomitant]
  5. GLUCOPHAGE [Concomitant]
  6. SPIRONOLACTONE [Concomitant]
  7. MULTIVITAMINS (ASCORBIC ACID, ERGOCALCIFEROL, FOLIC ACID, NICOTINAMIDE [Concomitant]

REACTIONS (4)
  - DRUG INEFFECTIVE [None]
  - OVERDOSE [None]
  - SCAB [None]
  - SENSORY LOSS [None]
